FAERS Safety Report 6973928-6 (Version None)
Quarter: 2010Q3

REPORT INFORMATION
  Report Type: 
  Country: None (occurrence: None)
  Receive Date: 20100909
  Receipt Date: 20100831
  Transmission Date: 20110219
  Serious: Yes (Life-Threatening, Hospitalization)
  Sender: FDA-Public Use
  Company Number: IN-ABBOTT-10P-078-0668810-00

PATIENT
  Age: 26 Year
  Sex: Male

DRUGS (1)
  1. VALPARIN CHRONO TABLETS [Suspect]
     Indication: GRAND MAL CONVULSION
     Route: 048
     Dates: start: 20100101

REACTIONS (2)
  - MEDICATION RESIDUE [None]
  - STATUS EPILEPTICUS [None]
